FAERS Safety Report 7402164-4 (Version None)
Quarter: 2011Q1

REPORT INFORMATION
  Report Type: 
  Country: None (occurrence: None)
  Receive Date: 20110330
  Receipt Date: 20110323
  Transmission Date: 20110831
  Serious: Yes (Life-Threatening)
  Sender: FDA-Public Use
  Company Number: 1000019582

PATIENT
  Age: 67 Year
  Sex: Male

DRUGS (9)
  1. ROFLUMILAST (ROFLUMILAST) (500 MICROGRAM, TABLETS) [Suspect]
     Indication: CHRONIC OBSTRUCTIVE PULMONARY DISEASE
     Dosage: 500 MCG (500 MCG, 1 IN 1 D),ORAL
     Route: 048
     Dates: start: 20110309, end: 20110313
  2. FORMOTEROL (FORMOTEROL) ( FORMOTEROL ) [Concomitant]
  3. OMEPRAZOLE [Concomitant]
  4. TRIMETAZIDINE (TRIMETAZIDINE) (35 MILLIGRAM)(TRIMETAZIDINE) [Concomitant]
  5. PERINDOPRIL (PERINDOPRIL) (2.5 MILLIGRAM) (PERINDOPRIL) [Concomitant]
  6. AMLODIPINE [Concomitant]
  7. TIOTROPIUM BROMIDE (TIOTROPIUM BROMIDE) (TIOTROPIUM BROMIDE) [Concomitant]
  8. SALBUTAMOL (SALBUTAMOL) (SALBUTAMOL) [Concomitant]
  9. ACETYLSALICYLIC ACID SRT [Concomitant]

REACTIONS (4)
  - DYSPNOEA [None]
  - HYPERTENSION [None]
  - CONDITION AGGRAVATED [None]
  - NAUSEA [None]
